FAERS Safety Report 8942918 (Version 3)
Quarter: 2013Q1

REPORT INFORMATION
  Report Type: Spontaneous
  Country: US (occurrence: None)
  Receive Date: 20121121
  Receipt Date: 20130102
  Transmission Date: 20140127
  Serious: Yes (Death, Hospitalization, Other)
  Sender: FDA-Public Use
  Company Number: ACO_33043_2012

PATIENT
  Age: 60 Year
  Sex: Female

DRUGS (12)
  1. AMPYRA (DALFAMPRIDINE) TABLET, 10MG [Suspect]
     Indication: PRODUCT USED FOR UNKNOWN INDICATION
     Dates: start: 20111007
  2. MULTIVITAMIN (VITAMINS NOS) [Concomitant]
  3. PROTEIN SUPPLEMENTS (PROSTAT 101) [Concomitant]
  4. BACLOFEN (BACLOFEN) [Concomitant]
  5. OMEPRAZOLE (OMEPRAZOLE) [Concomitant]
  6. LOVENOX (ENOXAPARIN SODIUM) [Concomitant]
  7. TYLENOL (PARACETAMOL) [Concomitant]
  8. PROCHLORPERAZINE MALEATE (PROCHLORPERAZINE MALEATE) [Concomitant]
  9. WELCHOL (COLESEVELAM HYDROCHLORIDE) [Concomitant]
  10. NYSTATIN (NYSTATIN) [Concomitant]
  11. PRILOSEC (OMEPRAZOLE MAGNESIUM) [Concomitant]
  12. SIMETHICONE (SIMETHICONE) [Concomitant]

REACTIONS (6)
  - Sepsis [None]
  - Hepatic cancer metastatic [None]
  - Escherichia bacteraemia [None]
  - Heart rate increased [None]
  - Multiple sclerosis relapse [None]
  - Inappropriate schedule of drug administration [None]
